FAERS Safety Report 6644505-1 (Version None)
Quarter: 2010Q1

REPORT INFORMATION
  Report Type: 
  Country: None (occurrence: None)
  Receive Date: 20100319
  Receipt Date: 20100319
  Transmission Date: 20100710
  Serious: Yes (Other)
  Sender: FDA-Public Use
  Company Number: None

PATIENT
  Sex: Female
  Weight: 72.5755 kg

DRUGS (2)
  1. LEVULAN [Suspect]
     Indication: PRECANCEROUS CELLS PRESENT
     Dosage: 1 HOUR ON FACE THEN 16 MIN OF BLUE LIGHT
     Dates: start: 20091029
  2. LEVULAN [Suspect]
     Indication: PRECANCEROUS CELLS PRESENT
     Dosage: 1 HOUR ON FACE THEN 16 MIN OF BLUE LIGHT
     Dates: start: 20091231

REACTIONS (2)
  - EYE INFECTION [None]
  - EYE PAIN [None]
